FAERS Safety Report 10676682 (Version 1)
Quarter: 2014Q4

REPORT INFORMATION
  Report Type: Spontaneous
  Country: NL (occurrence: NL)
  Receive Date: 20141226
  Receipt Date: 20141226
  Transmission Date: 20150529
  Serious: Yes (Life-Threatening, Hospitalization)
  Sender: FDA-Public Use
  Company Number: NL-BAYER-2014-189159

PATIENT
  Age: 28 Year
  Sex: Female
  Weight: 55 kg

DRUGS (1)
  1. MIRENA [Suspect]
     Active Substance: LEVONORGESTREL
     Indication: CONTRACEPTION
     Dosage: 20 MCG/24HR, CONT
     Route: 015
     Dates: start: 20120601, end: 20130701

REACTIONS (21)
  - Hyperventilation [Recovering/Resolving]
  - Fatigue [Recovered/Resolved]
  - Menometrorrhagia [Recovered/Resolved]
  - Generalised tonic-clonic seizure [Recovered/Resolved]
  - Abdominal pain lower [Recovered/Resolved]
  - Weight increased [Recovered/Resolved]
  - Dysmenorrhoea [Recovered/Resolved]
  - Loss of libido [Recovered/Resolved]
  - Affect lability [Recovered/Resolved]
  - Suicidal ideation [Recovered/Resolved]
  - Embedded device [Recovered/Resolved]
  - Acne [Recovered/Resolved]
  - Hypermobility syndrome [Recovered/Resolved with Sequelae]
  - Abdominal distension [Recovered/Resolved]
  - Dysuria [Not Recovered/Not Resolved]
  - Aggression [Recovered/Resolved]
  - Malaise [Recovered/Resolved]
  - Depression [Recovered/Resolved]
  - Urinary retention [Not Recovered/Not Resolved]
  - Pain [Recovered/Resolved with Sequelae]
  - Ovarian cyst [Recovered/Resolved]

NARRATIVE: CASE EVENT DATE: 201206
